FAERS Safety Report 10921711 (Version 1)
Quarter: 2015Q1

REPORT INFORMATION
  Report Type: Spontaneous
  Country: SI (occurrence: SI)
  Receive Date: 20150317
  Receipt Date: 20150317
  Transmission Date: 20150721
  Serious: Yes (Hospitalization, Other)
  Sender: FDA-Public Use
  Company Number: SI-ABBVIE-15K-261-1359296-00

PATIENT
  Age: 37 Year
  Sex: Male

DRUGS (6)
  1. HUMIRA [Suspect]
     Active Substance: ADALIMUMAB
     Indication: ANKYLOSING SPONDYLITIS
     Route: 065
     Dates: start: 20091201, end: 20100422
  2. ETANERCEPT [Suspect]
     Active Substance: ETANERCEPT
     Indication: PRODUCT USED FOR UNKNOWN INDICATION
     Route: 065
     Dates: start: 20140505
  3. NAPROKSEN [Suspect]
     Active Substance: NAPROXEN
     Indication: PRODUCT USED FOR UNKNOWN INDICATION
     Dosage: 2 TO 3 TABLETS (TWO TIMES)
     Route: 065
  4. GOLIMUMAB [Suspect]
     Active Substance: GOLIMUMAB
     Indication: PRODUCT USED FOR UNKNOWN INDICATION
     Route: 065
     Dates: start: 20111027, end: 20130107
  5. INFLIXIMAB [Suspect]
     Active Substance: INFLIXIMAB
     Indication: PRODUCT USED FOR UNKNOWN INDICATION
     Route: 065
     Dates: start: 20130128, end: 20140221
  6. INFLIXIMAB [Suspect]
     Active Substance: INFLIXIMAB
     Route: 065

REACTIONS (13)
  - Spinal pain [Unknown]
  - Angina pectoris [Unknown]
  - Rash vesicular [Unknown]
  - Pruritus allergic [Recovered/Resolved]
  - Application site rash [Recovered/Resolved]
  - Anaphylactic reaction [Unknown]
  - Dermatitis allergic [Recovered/Resolved]
  - Hypotension [Unknown]
  - Application site pruritus [Recovered/Resolved]
  - Urinary tract infection [Unknown]
  - Dyspnoea [Unknown]
  - Rash pruritic [Recovered/Resolved]
  - Sacroiliitis [Unknown]

NARRATIVE: CASE EVENT DATE: 2010
